FAERS Safety Report 8625036-6 (Version None)
Quarter: 2012Q3

REPORT INFORMATION
  Report Type: 
  Country: None (occurrence: None)
  Receive Date: 20120827
  Receipt Date: 20120823
  Transmission Date: 20120928
  Serious: Yes (Death)
  Sender: FDA-Public Use
  Company Number: US-ELI_LILLY_AND_COMPANY-US201208000139

PATIENT
  Sex: Female
  Weight: 61.224 kg

DRUGS (13)
  1. COMBIVENT [Concomitant]
  2. NEXIUM [Concomitant]
  3. JANTOVEN [Concomitant]
  4. JANUVIA [Concomitant]
  5. GLIMEPIRIDE [Concomitant]
  6. PREDNISONE TAB [Concomitant]
  7. ADCIRCA [Suspect]
     Indication: PULMONARY HYPERTENSION
     Dosage: 20 MG, QD
     Route: 048
     Dates: start: 20120426
  8. PRAVACHOL [Concomitant]
  9. LASIX [Concomitant]
  10. AMLODIPINE BESYLATE [Concomitant]
  11. LISINOPRIL [Concomitant]
  12. AMLODIPINE [Concomitant]
  13. COREG [Concomitant]

REACTIONS (1)
  - DEATH [None]
